FAERS Safety Report 6278500-1 (Version None)
Quarter: 2009Q3

REPORT INFORMATION
  Report Type: 
  Country: None (occurrence: None)
  Receive Date: 20090721
  Receipt Date: 20090710
  Transmission Date: 20100115
  Serious: Yes (Disabling, Other)
  Sender: FDA-Public Use
  Company Number: OSCN-NO-0907S-0369

PATIENT
  Age: 41 Year
  Sex: Male

DRUGS (10)
  1. OMNISCAN [Suspect]
     Indication: RENAL CANCER
     Dosage: SINGLE DOSE, I.V.
     Route: 042
     Dates: start: 20050725, end: 20070725
  2. SEVELAMER  HYDROCHLORIDE (RENAGEL) [Concomitant]
  3. CALTAN [Concomitant]
  4. NIFEDIPINE (ADALAT L) [Concomitant]
  5. METHYLDOPA (ALDOMET) [Concomitant]
  6. LEVOGLUTAMIDE, SODIUM GUALENATE (MARZULENE S) [Concomitant]
  7. FAMOTIDINE (GASTER D) [Concomitant]
  8. TRANDOLAPRIL (PRERAN) [Concomitant]
  9. COLESTILAN (CHOLEBINE) [Concomitant]
  10. ALLOPURINOL [Concomitant]

REACTIONS (6)
  - ARTHRALGIA [None]
  - BONE PAIN [None]
  - COMPLICATIONS OF TRANSPLANTED KIDNEY [None]
  - GAIT DISTURBANCE [None]
  - HYPERPARATHYROIDISM [None]
  - RENAL TRANSPLANT [None]
